FAERS Safety Report 9304072 (Version 4)
Quarter: 2013Q3

REPORT INFORMATION
  Report Type: Report from Study
  Country: US (occurrence: US)
  Receive Date: 20130522
  Receipt Date: 20130905
  Transmission Date: 20140515
  Serious: Yes (Death, Hospitalization)
  Sender: FDA-Public Use
  Company Number: US-ASTELLAS-2013EU004321

PATIENT
  Age: 87 Year
  Sex: Male
  Weight: 76 kg

DRUGS (12)
  1. BLINDED ENZALUTAMIDE [Suspect]
     Indication: PROSTATE CANCER
     Dosage: UNK
     Route: 048
     Dates: start: 20130424, end: 20130428
  2. TERAZOSIN HCL [Concomitant]
     Indication: BENIGN PROSTATIC HYPERPLASIA
     Dosage: 5 MG, UID/QD
     Route: 048
     Dates: start: 20130103
  3. MULTIVIT [Concomitant]
     Indication: SUPPLEMENTATION THERAPY
     Dosage: 1 UNK, UID/QD
     Route: 048
  4. ASPIRIN [Concomitant]
     Indication: PROPHYLAXIS
     Dosage: 81 MG, UID/QD
     Route: 048
  5. MIRALAX                            /06344701/ [Concomitant]
     Indication: CONSTIPATION
     Dosage: 17 G, PRN
     Route: 048
  6. TRIAMTEREN HCT [Concomitant]
     Indication: OEDEMA
     Dosage: UNK
     Route: 048
  7. LUPRON [Concomitant]
     Indication: PROSTATE CANCER
     Dosage: 30 MG, 1 IN 4 M
     Route: 030
     Dates: start: 2003
  8. CALCIUM + VITAMIN D                /01483701/ [Concomitant]
     Indication: SUPPLEMENTATION THERAPY
     Dosage: UNK MG, UID/QD
     Route: 048
     Dates: start: 20130226
  9. CO Q-10 [Concomitant]
     Indication: SUPPLEMENTATION THERAPY
     Dosage: 100 MG, UID/QD
     Route: 048
     Dates: start: 20130402
  10. TOLTERODINE L-TARTRATE [Concomitant]
     Indication: POLLAKIURIA
     Dosage: 2 MG, BID
     Route: 048
     Dates: start: 20130402
  11. VITAMIN D3 [Concomitant]
     Indication: SUPPLEMENTATION THERAPY
     Dosage: 2000 DF, UID/QD
     Route: 048
     Dates: start: 2011
  12. TYLENOL                            /00020001/ [Concomitant]
     Dosage: UNK
     Route: 048
     Dates: start: 20130429

REACTIONS (6)
  - Death [Fatal]
  - Haematuria [Recovered/Resolved]
  - Bladder outlet obstruction [Recovered/Resolved]
  - Renal failure acute [Not Recovered/Not Resolved]
  - Hydronephrosis [Not Recovered/Not Resolved]
  - Anaemia [Not Recovered/Not Resolved]
